FAERS Safety Report 4336929-2 (Version None)
Quarter: 2004Q2

REPORT INFORMATION
  Report Type: 
  Country: None (occurrence: None)
  Receive Date: 20040408
  Receipt Date: 20040323
  Transmission Date: 20050107
  Serious: Yes (Life-Threatening, Hospitalization)
  Sender: FDA-Public Use
  Company Number: DSA_24136_2004

PATIENT
  Age: 44 Year
  Sex: Male

DRUGS (6)
  1. CARDIZEM LA [Suspect]
     Indication: HYPERTENSION
     Dosage: 300 MG Q DAY PO
     Route: 048
     Dates: start: 20040301, end: 20040301
  2. NORVASC [Concomitant]
  3. MONOPRIL [Concomitant]
  4. HYZAAR [Concomitant]
  5. GLUCOVANCE [Concomitant]
  6. LIPITOR [Concomitant]

REACTIONS (4)
  - ACUTE GENERALISED EXANTHEMATOUS PUSTULOSIS [None]
  - BLOOD PRESSURE DECREASED [None]
  - BODY TEMPERATURE INCREASED [None]
  - RENAL IMPAIRMENT [None]
